FAERS Safety Report 7418530-7 (Version None)
Quarter: 2011Q2

REPORT INFORMATION
  Report Type: 
  Country: None (occurrence: None)
  Receive Date: 20110407
  Receipt Date: 20110329
  Transmission Date: 20111010
  Serious: Yes (Hospitalization)
  Sender: FDA-Public Use
  Company Number: WAES 1103USA03773

PATIENT
  Age: 71 Year
  Sex: Male
  Weight: 87.9978 kg

DRUGS (19)
  1. EPLERENONE [Suspect]
     Indication: CARDIAC FAILURE CONGESTIVE
     Dosage: 25 MG/PRN/PO
     Route: 048
     Dates: start: 20100915
  2. COREG [Suspect]
     Dosage: PO
     Route: 048
     Dates: start: 20050309
  3. METHIMAZOL [Concomitant]
  4. PERCOCET [Concomitant]
  5. PREDNISONE [Concomitant]
  6. AMIODARONA [Concomitant]
  7. CHOLECALCIFEROL (+) VITAMIN A (+ [Concomitant]
  8. PRINIVIL [Suspect]
     Indication: HYPOTENSION
     Dosage: PO
     Route: 048
     Dates: start: 20050309
  9. TAMSULOSIN HYDROCHLORIDE [Concomitant]
  10. CYANOCOBALAMIN [Concomitant]
  11. AVELOX [Concomitant]
  12. DIGOXIN [Concomitant]
  13. LANTUS [Concomitant]
  14. LASIX [Concomitant]
  15. NOVOLOG [Concomitant]
  16. ASPIRIN [Concomitant]
  17. SIMVASTATIN [Concomitant]
  18. WARFARIN [Concomitant]
  19. LIRAGLUTIDE [Concomitant]

REACTIONS (4)
  - ATRIAL FLUTTER [None]
  - RESPIRATORY RATE DECREASED [None]
  - HYPOTENSION [None]
  - ASTHENIA [None]
